FAERS Safety Report 6992378-X (Version None)
Quarter: 2010Q3

REPORT INFORMATION
  Report Type: 
  Country: None (occurrence: None)
  Receive Date: 20100915
  Receipt Date: 20100908
  Transmission Date: 20110219
  Serious: Yes (Hospitalization)
  Sender: FDA-Public Use
  Company Number: 2010MA002450

PATIENT
  Age: 77 Year
  Sex: Male

DRUGS (3)
  1. FEVERALL [Suspect]
  2. OMEPRAZOLE [Suspect]
     Indication: DYSPEPSIA
     Dosage: 40 MG;HS; PO
     Route: 048
  3. BENDROFLUMETHIAZIDE (BENDROFLUMETHIAZIDE ) [Suspect]
     Indication: HYPERTENSION
     Dosage: 2.5 MG;QD; PO
     Route: 048
     Dates: end: 20100901

REACTIONS (3)
  - BLOOD SODIUM DECREASED [None]
  - CONFUSIONAL STATE [None]
  - OVERDOSE [None]
